FAERS Safety Report 5235340-X (Version None)
Quarter: 2007Q1

REPORT INFORMATION
  Report Type: 
  Country: None (occurrence: None)
  Receive Date: 20070207
  Receipt Date: 20070207
  Transmission Date: 20070707
  Serious: Yes (Hospitalization)
  Sender: FDA-Public Use
  Company Number: None

PATIENT
  Age: 74 Year
  Sex: Male
  Weight: 69.4003 kg

DRUGS (2)
  1. BONIVA [Suspect]
     Indication: OSTEOPOROSIS
     Dosage: 2.5MG MONTH PO
     Route: 048
     Dates: start: 20060222, end: 20060407
  2. BONIVA [Suspect]
     Indication: OSTEOPOROSIS
     Dosage: 150MG MONTH PO
     Route: 048
     Dates: start: 20060407, end: 20070203

REACTIONS (5)
  - DYSPHAGIA [None]
  - HEAD INJURY [None]
  - OESOPHAGEAL SPASM [None]
  - SKIN LACERATION [None]
  - SYNCOPE [None]
